FAERS Safety Report 6219042-9 (Version None)
Quarter: 2009Q2

REPORT INFORMATION
  Report Type: 
  Country: None (occurrence: None)
  Receive Date: 20090608
  Receipt Date: 20090529
  Transmission Date: 20091009
  Serious: Yes (Hospitalization, Other)
  Sender: FDA-Public Use
  Company Number: US-PFIZER INC-2009222878

PATIENT
  Sex: Female
  Weight: 96 kg

DRUGS (1)
  1. LIPITOR [Suspect]
     Indication: BLOOD CHOLESTEROL INCREASED
     Dosage: 40 MG, 1X/DAY
     Route: 048
     Dates: start: 20081201

REACTIONS (9)
  - ANXIETY [None]
  - ARTHRALGIA [None]
  - DYSPNOEA [None]
  - FATIGUE [None]
  - HEPATITIS C [None]
  - MYALGIA [None]
  - PAIN [None]
  - RASH [None]
  - WEIGHT INCREASED [None]
